FAERS Safety Report 7684672 (Version 4)
Quarter: 2013Q2

REPORT INFORMATION
  Report Type: Spontaneous
  Country: US (occurrence: US)
  Receive Date: 20101129
  Receipt Date: 20130502
  Transmission Date: 20140414
  Serious: Yes (Other)
  Sender: FDA-Public Use
  Company Number: US-ROCHE-722538

PATIENT
  Age: 25 Year
  Sex: Female
  Weight: 63.5 kg

DRUGS (4)
  1. ACCUTANE [Suspect]
     Indication: ACNE CYSTIC
     Route: 065
  2. ACCUTANE [Suspect]
     Route: 065
     Dates: start: 1989, end: 1991
  3. ACCUTANE [Suspect]
     Route: 065
     Dates: start: 199901, end: 199901
  4. ACCUTANE [Suspect]
     Dosage: 40 MG/80 MG ALTERNATE DAYS
     Route: 065
     Dates: start: 199902, end: 199905

REACTIONS (7)
  - Colitis ulcerative [Unknown]
  - Gastrointestinal injury [Unknown]
  - Depression [Unknown]
  - Inflammatory bowel disease [Unknown]
  - Irritable bowel syndrome [Unknown]
  - Rash [Unknown]
  - Oropharyngeal pain [Unknown]
